FAERS Safety Report 9015622 (Version 1)
Quarter: 2013Q1

REPORT INFORMATION
  Report Type: Spontaneous
  Country: HR (occurrence: HR)
  Receive Date: 20130116
  Receipt Date: 20130116
  Transmission Date: 20140127
  Serious: Yes (Hospitalization)
  Sender: FDA-Public Use
  Company Number: HR-MERCK-1301HRV004847

PATIENT
  Sex: Male

DRUGS (2)
  1. JANUVIA [Suspect]
     Dosage: UNK
  2. AMARYL [Concomitant]

REACTIONS (1)
  - Vasculitis [Unknown]
